FAERS Safety Report 11993630 (Version 1)
Quarter: 2016Q1

REPORT INFORMATION
  Report Type: Spontaneous
  Country: US (occurrence: US)
  Receive Date: 20160203
  Receipt Date: 20160203
  Transmission Date: 20160526
  Serious: No
  Sender: FDA-Public Use
  Company Number: US-PFIZER INC-2016057295

PATIENT
  Age: 73 Year
  Sex: Male
  Weight: 97.52 kg

DRUGS (6)
  1. ADVIL [Suspect]
     Active Substance: IBUPROFEN
     Indication: ARTHRALGIA
     Dosage: 2 CAPSULES EVERY 4 TO 6 HOURS
     Route: 048
     Dates: start: 201601
  2. FUROSEMIDE. [Interacting]
     Active Substance: FUROSEMIDE
     Indication: DIURETIC THERAPY
     Dosage: 40MG TABLET ONCE A DAY
     Route: 048
  3. ADVIL [Interacting]
     Active Substance: IBUPROFEN
     Indication: FALL
     Dosage: UNK
  4. METOPROLOL. [Concomitant]
     Active Substance: METOPROLOL
     Indication: HYPERTENSION
     Dosage: 50MG TABLET AT BED TIME
  5. SPIRONOLACTONE. [Interacting]
     Active Substance: SPIRONOLACTONE
     Indication: SWELLING
     Dosage: 25MG TABLET ONCE
     Route: 048
  6. SPIRONOLACTONE. [Interacting]
     Active Substance: SPIRONOLACTONE
     Indication: FLUID RETENTION

REACTIONS (3)
  - Drug interaction [Unknown]
  - Constipation [Not Recovered/Not Resolved]
  - Decreased appetite [Not Recovered/Not Resolved]

NARRATIVE: CASE EVENT DATE: 201601
